FAERS Safety Report 8290950-0 (Version None)
Quarter: 2012Q2

REPORT INFORMATION
  Report Type: 
  Country: None (occurrence: None)
  Receive Date: 20120417
  Receipt Date: 20120103
  Transmission Date: 20120825
  Serious: No
  Sender: FDA-Public Use
  Company Number: US-ASTRAZENECA-2012SE00413

PATIENT

DRUGS (1)
  1. NEXIUM [Suspect]
     Route: 048

REACTIONS (4)
  - MAGNESIUM DEFICIENCY [None]
  - IRON DEFICIENCY [None]
  - VITAMIN B1 DEFICIENCY [None]
  - VITAMIN B6 DEFICIENCY [None]
